FAERS Safety Report 21472827 (Version 1)
Quarter: 2022Q4

REPORT INFORMATION
  Report Type: Spontaneous
  Country: US (occurrence: US)
  Receive Date: 20221018
  Receipt Date: 20221018
  Transmission Date: 20230112
  Serious: Yes (Other)
  Sender: FDA-Public Use
  Company Number: US-PFIZER INC-2018531209

PATIENT
  Age: 68 Year
  Sex: Female

DRUGS (1)
  1. RAPAMUNE [Suspect]
     Active Substance: SIROLIMUS
     Indication: Liver transplant
     Dosage: 3 MG, DAILY (TAKE 3 TABLETS DAILY)

REACTIONS (2)
  - Dementia Alzheimer^s type [Unknown]
  - Off label use [Unknown]
